FAERS Safety Report 25761311 (Version 1)
Quarter: 2025Q3

REPORT INFORMATION
  Report Type: Spontaneous
  Country: HK (occurrence: HK)
  Receive Date: 20250904
  Receipt Date: 20250904
  Transmission Date: 20251021
  Serious: Yes (Other)
  Sender: PFIZER
  Company Number: HK-PFIZER INC-PV202500106236

PATIENT

DRUGS (1)
  1. LORLATINIB [Suspect]
     Active Substance: LORLATINIB
     Dates: start: 202505

REACTIONS (2)
  - Hallucination [Unknown]
  - Weight increased [Unknown]

NARRATIVE: CASE EVENT DATE: 20250701
